FAERS Safety Report 16394125 (Version 1)
Quarter: 2019Q3

REPORT INFORMATION
  Report Type: Spontaneous
  Country: US (occurrence: US)
  Receive Date: 20190603
  Receipt Date: 20190603
  Transmission Date: 20191004
  Serious: Yes (Hospitalization)
  Sender: FDA-Public Use
  Company Number: None

PATIENT
  Age: 68 Year
  Sex: Female
  Weight: 65 kg

DRUGS (7)
  1. CALCIUM 750MG DAILY [Concomitant]
  2. ESOMEPRAZOLE 20MG DAILY [Concomitant]
  3. MAGNESIUM CARBONATE 54MG DAILY [Concomitant]
  4. CHOLECALCIFEROL 5000 U DAILY [Concomitant]
  5. PHENOBARBITAL 194.4MG DAILY [Concomitant]
  6. ZOLEDRONIC ACID [Suspect]
     Active Substance: ZOLEDRONIC ACID
     Indication: OSTEOPOROSIS
     Dosage: ?          OTHER FREQUENCY:ANNUALLY;?
     Route: 041
     Dates: start: 20090601, end: 20190521
  7. ASPIRIN 81MG DAILY [Concomitant]
     Active Substance: ASPIRIN

REACTIONS (5)
  - Urinary tract infection [None]
  - Pre-existing condition improved [None]
  - Abnormal behaviour [None]
  - Blood lactic acid increased [None]
  - Atypical femur fracture [None]

NARRATIVE: CASE EVENT DATE: 20190514
